FAERS Safety Report 5331665-8 (Version None)
Quarter: 2007Q2

REPORT INFORMATION
  Report Type: 
  Country: None (occurrence: None)
  Receive Date: 20070516
  Receipt Date: 20070503
  Transmission Date: 20071010
  Serious: Yes (Death, Life-Threatening, Other)
  Sender: FDA-Public Use
  Company Number: MC200700360

PATIENT
  Age: 58 Year
  Sex: Female

DRUGS (2)
  1. ANGIOMAX [Suspect]
     Indication: HEPARIN-INDUCED THROMBOCYTOPENIA
     Dosage: SEE IMAGE
     Route: 042
  2. LEPIRUDIN (LEPIRUDIN) [Concomitant]

REACTIONS (6)
  - ARTERIOSCLEROSIS CORONARY ARTERY [None]
  - CARDIAC PROCEDURE COMPLICATION [None]
  - CARDIOGENIC SHOCK [None]
  - DISEASE PROGRESSION [None]
  - HEPATIC FAILURE [None]
  - VASCULAR GRAFT OCCLUSION [None]
